FAERS Safety Report 11593283 (Version 1)
Quarter: 2015Q4

REPORT INFORMATION
  Report Type: Report from Study
  Country: CA (occurrence: CA)
  Receive Date: 20151005
  Receipt Date: 20151005
  Transmission Date: 20160304
  Serious: Yes (Hospitalization)
  Sender: FDA-Public Use
  Company Number: CA-JNJFOC-20150925570

PATIENT
  Sex: Female

DRUGS (1)
  1. SIMPONI [Suspect]
     Active Substance: GOLIMUMAB
     Indication: RHEUMATOID ARTHRITIS
     Route: 058
     Dates: start: 20150901

REACTIONS (7)
  - Cognitive disorder [Unknown]
  - General physical condition abnormal [Unknown]
  - Head injury [Unknown]
  - Fall [Unknown]
  - Subdural haemorrhage [Unknown]
  - Fatigue [Unknown]
  - Urinary tract infection [Unknown]
